APPROVED DRUG PRODUCT: AQUATENSEN
Active Ingredient: METHYCLOTHIAZIDE
Strength: 5MG
Dosage Form/Route: TABLET;ORAL
Application: N017364 | Product #001
Applicant: MEDPOINTE PHARMACEUTICALS MEDPOINTE HEALTHCARE INC
Approved: Approved Prior to Jan 1, 1982 | RLD: No | RS: No | Type: DISCN